FAERS Safety Report 6660366-9 (Version None)
Quarter: 2010Q1

REPORT INFORMATION
  Report Type: 
  Country: None (occurrence: None)
  Receive Date: 20100330
  Receipt Date: 20100330
  Transmission Date: 20100710
  Serious: No
  Sender: FDA-Public Use
  Company Number: None

PATIENT
  Age: 59 Year
  Sex: Female
  Weight: 63.5036 kg

DRUGS (4)
  1. SULFAMETHOXAZOLE AND TRIMETHOPRIM [Suspect]
     Indication: EAR INFECTION
     Dosage: 1 TABLET 2 X'S A DAY
     Dates: start: 20091223
  2. SULFAMETHOXAZOLE AND TRIMETHOPRIM [Suspect]
     Indication: SINUS DISORDER
     Dosage: 1 TABLET 2 X'S A DAY
     Dates: start: 20091223
  3. SULFAMETHOXAZOLE AND TRIMETHOPRIM [Suspect]
     Indication: EAR INFECTION
     Dosage: 1 TABLET 2 X'S A DAY
     Dates: start: 20100312
  4. SULFAMETHOXAZOLE AND TRIMETHOPRIM [Suspect]
     Indication: SINUS DISORDER
     Dosage: 1 TABLET 2 X'S A DAY
     Dates: start: 20100312

REACTIONS (5)
  - LOCAL SWELLING [None]
  - PALPITATIONS [None]
  - SWELLING FACE [None]
  - URTICARIA [None]
  - WHEEZING [None]
